FAERS Safety Report 18092348 (Version 2)
Quarter: 2020Q3

REPORT INFORMATION
  Report Type: Spontaneous
  Country: HU (occurrence: HU)
  Receive Date: 20200730
  Receipt Date: 20200825
  Transmission Date: 20201103
  Serious: Yes (Other)
  Sender: FDA-Public Use
  Company Number: NVSC2020HU211511

PATIENT
  Age: 36 Year
  Sex: Male

DRUGS (13)
  1. FENTANYL. [Concomitant]
     Active Substance: FENTANYL
     Indication: SUPPORTIVE CARE
     Dosage: UNK
     Route: 042
     Dates: start: 20200710
  2. BROMHEXINE [Concomitant]
     Active Substance: BROMHEXINE
     Indication: PRODUCTIVE COUGH
     Dosage: UNK
     Route: 042
     Dates: start: 20200712
  3. METOCLOPRAMIDE. [Concomitant]
     Active Substance: METOCLOPRAMIDE
     Indication: PROPHYLAXIS OF NAUSEA AND VOMITING
     Dosage: UNK
     Route: 042
     Dates: start: 20200710
  4. MIDAZOLAM. [Concomitant]
     Active Substance: MIDAZOLAM
     Indication: MECHANICAL VENTILATION
     Dosage: UNK
     Route: 042
     Dates: start: 20200710
  5. COLOMYCIN [Concomitant]
     Indication: ACINETOBACTER INFECTION
     Dosage: UNK
     Route: 042
     Dates: start: 20200716
  6. PANTOPRAZOLE [Concomitant]
     Active Substance: PANTOPRAZOLE
     Indication: PROPHYLAXIS AGAINST GASTROINTESTINAL ULCER
     Dosage: UNK
     Route: 042
     Dates: start: 20200710
  7. CEFTRIAXONE. [Concomitant]
     Active Substance: CEFTRIAXONE
     Indication: BACTERIAL INFECTION
     Dosage: UNK
     Route: 042
     Dates: start: 20200710, end: 20200713
  8. PROPOFOL. [Concomitant]
     Active Substance: PROPOFOL
     Indication: MECHANICAL VENTILATION
     Dosage: UNK
     Route: 042
     Dates: start: 20200710
  9. CLEXANE [Concomitant]
     Active Substance: ENOXAPARIN SODIUM
     Indication: THROMBOSIS PROPHYLAXIS
     Dosage: UNK
     Route: 058
     Dates: start: 20200710
  10. AZITHROMYCIN ANHYDROUS. [Concomitant]
     Active Substance: AZITHROMYCIN ANHYDROUS
     Indication: BACTERIAL INFECTION
     Dosage: UNK
     Route: 048
     Dates: start: 20200710
  11. NORADRENALINE [Concomitant]
     Active Substance: NOREPINEPHRINE
     Indication: CARDIOVASCULAR EVENT PROPHYLAXIS
     Dosage: UNK
     Route: 042
     Dates: start: 20200712, end: 20200715
  12. PIPERACILLIN,TAZOBACTAM [Suspect]
     Active Substance: PIPERACILLIN SODIUM\TAZOBACTAM SODIUM
     Indication: BACTERIAL INFECTION
     Dosage: UNK
     Route: 042
     Dates: start: 20200713
  13. THEOPHYLLINE [Concomitant]
     Active Substance: THEOPHYLLINE ANHYDROUS
     Indication: SUPPORTIVE CARE
     Dosage: UNK
     Route: 042
     Dates: start: 20200710

REACTIONS (3)
  - Oropharyngeal candidiasis [Not Recovered/Not Resolved]
  - Alanine aminotransferase increased [Recovered/Resolved with Sequelae]
  - Pneumonia bacterial [Not Recovered/Not Resolved]

NARRATIVE: CASE EVENT DATE: 20200718
